FAERS Safety Report 6005638-6 (Version None)
Quarter: 2008Q4

REPORT INFORMATION
  Report Type: 
  Country: None (occurrence: None)
  Receive Date: 20081216
  Receipt Date: 20081216
  Transmission Date: 20090506
  Serious: Yes (Other)
  Sender: FDA-Public Use
  Company Number: None

PATIENT
  Age: 52 Year
  Sex: Female
  Weight: 60.9634 kg

DRUGS (2)
  1. ARIMIDEX [Suspect]
     Indication: BREAST CANCER FEMALE
     Dosage: 1MG DAILY PO
     Route: 048
     Dates: start: 20080717, end: 20081214
  2. ARIMIDEX [Suspect]
     Indication: PROPHYLAXIS
     Dosage: 1MG DAILY PO
     Route: 048
     Dates: start: 20080717, end: 20081214

REACTIONS (10)
  - BREAST PAIN [None]
  - BURNING SENSATION [None]
  - CARPAL TUNNEL SYNDROME [None]
  - CONDITION AGGRAVATED [None]
  - CRYING [None]
  - FALL [None]
  - NO THERAPEUTIC RESPONSE [None]
  - PAIN IN EXTREMITY [None]
  - RIB FRACTURE [None]
  - SCREAMING [None]
